FAERS Safety Report 6709614-7 (Version None)
Quarter: 2010Q2

REPORT INFORMATION
  Report Type: 
  Country: None (occurrence: None)
  Receive Date: 20100504
  Receipt Date: 20100422
  Transmission Date: 20101027
  Serious: Yes (Hospitalization, Other)
  Sender: FDA-Public Use
  Company Number: US-PFIZER INC-2010051926

PATIENT
  Sex: Female
  Weight: 63 kg

DRUGS (29)
  1. GEODON [Suspect]
     Dosage: UNK
  2. TYLENOL-500 [Concomitant]
     Dosage: UNK
  3. ACYCLOVIR [Concomitant]
     Dosage: UNK
  4. AMPICILLIN SODIUM/SULBACTAM SODIUM [Concomitant]
     Dosage: UNK
  5. ASCORBIC ACID [Concomitant]
     Dosage: UNK
  6. CYANOCOBALAMIN [Concomitant]
     Dosage: UNK
  7. BENADRYL [Concomitant]
     Dosage: UNK
  8. DOXEPIN [Concomitant]
     Dosage: UNK
  9. FERROUS SULFATE TAB [Concomitant]
     Dosage: UNK
  10. FLUCONAZOLE [Concomitant]
     Dosage: UNK
  11. FOLIC ACID [Concomitant]
     Dosage: UNK
  12. ARIXTRA [Concomitant]
     Dosage: UNK
  13. LASIX [Concomitant]
     Dosage: UNK
  14. MOTRIN [Concomitant]
     Dosage: UNK
  15. LACTOBACILLUS ACIDOPHILUS [Concomitant]
     Dosage: UNK
  16. LEVOTHYROXINE [Concomitant]
     Dosage: UNK
  17. LIDOCAINE [Concomitant]
     Dosage: UNK
  18. LOPERAMIDE [Concomitant]
     Dosage: UNK
  19. ATIVAN [Concomitant]
     Dosage: UNK
  20. METOPROLOL [Concomitant]
     Dosage: UNK
  21. METRONIDAZOLE [Concomitant]
     Dosage: UNK
  22. MAGNESIUM OXIDE [Concomitant]
     Dosage: UNK
  23. MULTI-VITAMINS [Concomitant]
     Dosage: UNK
  24. LEVOPHED [Concomitant]
     Dosage: UNK
  25. PROTONIX [Concomitant]
     Dosage: UNK
  26. POTASSIUM [Concomitant]
     Dosage: UNK
  27. THIAMINE [Concomitant]
     Dosage: UNK
  28. PREDNISONE [Concomitant]
     Dosage: UNK
  29. VORICONAZOLE [Concomitant]
     Dosage: UNK

REACTIONS (3)
  - AGRANULOCYTOSIS [None]
  - FEBRILE NEUTROPENIA [None]
  - PLATELET COUNT DECREASED [None]
